FAERS Safety Report 9110518 (Version 1)
Quarter: 2013Q1

REPORT INFORMATION
  Report Type: Spontaneous
  Country: US (occurrence: US)
  Receive Date: 20130221
  Receipt Date: 20130221
  Transmission Date: 20140127
  Serious: No
  Sender: FDA-Public Use
  Company Number: US-BRACCO-008532

PATIENT
  Sex: 0

DRUGS (2)
  1. CHOLETEC [Suspect]
     Indication: LIVER SCAN
     Route: 042
     Dates: start: 20120815, end: 20120815
  2. CHOLETEC [Suspect]
     Indication: PRODUCT USED FOR UNKNOWN INDICATION
     Route: 042
     Dates: start: 20120815, end: 20120815

REACTIONS (1)
  - Therapeutic response unexpected [Unknown]
